FAERS Safety Report 8845260 (Version 1)
Quarter: 2012Q4

REPORT INFORMATION
  Report Type: 
  Country: IT (occurrence: IT)
  Receive Date: 20121017
  Receipt Date: 20121017
  Transmission Date: 20130627
  Serious: Yes (Death, Hospitalization, Other)
  Sender: FDA-Public Use
  Company Number: IT-BRISTOL-MYERS SQUIBB COMPANY-15272388

PATIENT
  Age: 58 Year
  Sex: Female

DRUGS (11)
  1. ORENCIA FOR INJ 250 MG/VIAL [Suspect]
     Indication: RHEUMATOID ARTHRITIS
     Route: 042
     Dates: start: 20090922, end: 20100624
  2. DELTACORTENE [Concomitant]
     Dosage: Deltacortene 5 mg oral tabs
     Route: 048
  3. COUMADIN TABS [Concomitant]
     Route: 048
  4. EUROCAL D [Concomitant]
     Dosage: Eurocal D3 effervescent granules sachets
1D.F:1000 mg/880 IU
  5. ACTONEL [Concomitant]
     Dosage: Actonel 35 mg film coated oral tabs
     Route: 048
  6. LANSOX [Concomitant]
     Dosage: tabs
     Route: 048
  7. CRESTOR [Concomitant]
     Dosage: Creastor 5 mg film coated oral tabs
     Route: 048
  8. XANAX [Concomitant]
     Dosage: Xanax 0.5 mg prolonged release oral tabs
     Route: 048
  9. INDOXEN [Concomitant]
     Dosage: caps
  10. KARVEA TABS 150 MG [Concomitant]
  11. PREDNISONE [Concomitant]

REACTIONS (2)
  - Death [Fatal]
  - Colon cancer [Unknown]
